FAERS Safety Report 9175195 (Version 1)
Quarter: 2013Q1

REPORT INFORMATION
  Report Type: Report from Study
  Country: US (occurrence: US)
  Receive Date: 20130320
  Receipt Date: 20130320
  Transmission Date: 20140127
  Serious: Yes (Other)
  Sender: FDA-Public Use
  Company Number: US-ROCHE-1041924

PATIENT
  Sex: 0

DRUGS (3)
  1. PERTUZUMAB [Suspect]
     Indication: PANCREATIC NEUROENDOCRINE TUMOUR
     Route: 042
  2. BEVACIZUMAB [Suspect]
     Indication: PANCREATIC NEUROENDOCRINE TUMOUR
     Route: 042
  3. OCTREOTIDE [Suspect]
     Indication: PANCREATIC NEUROENDOCRINE TUMOUR
     Route: 030

REACTIONS (3)
  - Hypertension [Unknown]
  - Left ventricular dysfunction [Unknown]
  - Diarrhoea [Unknown]
